FAERS Safety Report 5066154-1 (Version None)
Quarter: 2006Q3

REPORT INFORMATION
  Report Type: 
  Country: None (occurrence: None)
  Receive Date: 20060725
  Receipt Date: 20060707
  Transmission Date: 20061208
  Serious: Yes (Other)
  Sender: FDA-Public Use
  Company Number: FR200602002963

PATIENT
  Age: 11 Year
  Sex: Female
  Weight: 31 kg

DRUGS (1)
  1. HUMATROPE [Suspect]
     Indication: GROWTH HORMONE DEFICIENCY
     Dosage: 0.98 DAILY (1/D) SUBCUTANEOUS
     Route: 058
     Dates: start: 20050728

REACTIONS (2)
  - DISEASE RECURRENCE [None]
  - IDIOPATHIC THROMBOCYTOPENIC PURPURA [None]
